FAERS Safety Report 9727136 (Version 1)
Quarter: 2013Q4

REPORT INFORMATION
  Report Type: Spontaneous
  Country: AU (occurrence: None)
  Receive Date: 20131129
  Receipt Date: 20131129
  Transmission Date: 20140711
  Serious: Yes (Life-Threatening, Hospitalization)
  Sender: FDA-Public Use
  Company Number: 2013P1021382

PATIENT
  Age: 65 Year
  Sex: Male

DRUGS (7)
  1. METFORMIN [Suspect]
     Indication: TYPE 2 DIABETES MELLITUS
  2. TRANDOLAPRIL [Suspect]
  3. SPIRONOLACTONE [Suspect]
  4. ATENOLOL [Concomitant]
  5. FRUSEMIDE [Concomitant]
  6. WARFARIN [Concomitant]
  7. INSULIN [Concomitant]

REACTIONS (18)
  - Lactic acidosis [None]
  - Cardio-respiratory arrest [None]
  - Hypothermia [None]
  - Dyspnoea [None]
  - Lethargy [None]
  - Melaena [None]
  - Nodal rhythm [None]
  - Blood pressure decreased [None]
  - Respiratory rate increased [None]
  - Atrioventricular block complete [None]
  - Cardiac arrest [None]
  - Hypoglycaemia [None]
  - Anaemia [None]
  - Coagulopathy [None]
  - International normalised ratio increased [None]
  - Activated partial thromboplastin time prolonged [None]
  - Renal failure acute [None]
  - Hypovolaemia [None]
